FAERS Safety Report 5850853-5 (Version None)
Quarter: 2008Q3

REPORT INFORMATION
  Report Type: 
  Country: None (occurrence: None)
  Receive Date: 20080819
  Receipt Date: 20080819
  Transmission Date: 20090109
  Serious: Yes (Hospitalization)
  Sender: FDA-Public Use
  Company Number: None

PATIENT
  Age: 77 Year
  Sex: Male

DRUGS (1)
  1. CELECOXIB [Suspect]
     Indication: PAIN
     Dosage: 200 MG EVERY DAY PO
     Route: 048
     Dates: start: 20080313, end: 20080717

REACTIONS (3)
  - GASTRIC HAEMORRHAGE [None]
  - LARGE INTESTINAL ULCER [None]
  - LOWER GASTROINTESTINAL HAEMORRHAGE [None]
